FAERS Safety Report 5609944-6 (Version None)
Quarter: 2008Q1

REPORT INFORMATION
  Report Type: 
  Country: None (occurrence: None)
  Receive Date: 20080129
  Receipt Date: 20080110
  Transmission Date: 20080703
  Serious: Yes (Hospitalization)
  Sender: FDA-Public Use
  Company Number: 2008BI001013

PATIENT
  Age: 42 Year
  Sex: Female
  Weight: 57.6068 kg

DRUGS (12)
  1. TYSABRI [Suspect]
     Indication: MULTIPLE SCLEROSIS
     Dosage: IV
     Route: 042
     Dates: start: 20070328
  2. ARICEPT [Concomitant]
  3. BACLOFEN [Concomitant]
  4. PROZAC [Concomitant]
  5. LASIX [Concomitant]
  6. LUNESTA [Concomitant]
  7. RITALIN LA [Concomitant]
  8. VALTREX [Concomitant]
  9. ZONEGRAN [Concomitant]
  10. TYLENOL (CAPLET) [Concomitant]
  11. ULTRAM [Concomitant]
  12. FLEXERIL [Concomitant]

REACTIONS (19)
  - ABASIA [None]
  - BACK DISORDER [None]
  - BACK PAIN [None]
  - BRONCHITIS [None]
  - COUGH [None]
  - DEPRESSION [None]
  - FALL [None]
  - INSOMNIA [None]
  - INTERVERTEBRAL DISC PROTRUSION [None]
  - LOSS OF CONSCIOUSNESS [None]
  - LYMPHOCYTE COUNT INCREASED [None]
  - MUSCLE SPASMS [None]
  - MUSCLE SPASTICITY [None]
  - MYOSITIS [None]
  - PNEUMONIA [None]
  - SPINAL COLUMN STENOSIS [None]
  - SYNCOPE [None]
  - VENOUS STASIS [None]
  - WHITE BLOOD CELL COUNT INCREASED [None]
